FAERS Safety Report 12771969 (Version 9)
Quarter: 2017Q2

REPORT INFORMATION
  Report Type: Spontaneous
  Country: US (occurrence: US)
  Receive Date: 20160922
  Receipt Date: 20170425
  Transmission Date: 20170830
  Serious: No
  Sender: FDA-Public Use
  Company Number: US-PFIZER INC-2016417976

PATIENT
  Age: 69 Year
  Sex: Male
  Weight: 127 kg

DRUGS (18)
  1. SUTENT [Suspect]
     Active Substance: SUNITINIB MALATE
     Dosage: 37.5 MG, CYCLIC [TAKE 3 CAPSULE 12.5 MG, 2 WEEKS ON AND 1 WEEK OFF]
     Route: 048
  2. FLOMAX [Concomitant]
     Active Substance: TAMSULOSIN HYDROCHLORIDE
     Indication: URINARY TRACT DISORDER
     Dosage: 0.4 MG, 1X/DAY
     Route: 048
     Dates: start: 2015
  3. SUTENT [Suspect]
     Active Substance: SUNITINIB MALATE
     Dosage: UNK [START: AUGUST OR SEPTEMBER]
  4. PRILOSEC [Concomitant]
     Active Substance: OMEPRAZOLE MAGNESIUM
     Dosage: UNK
  5. XANAX [Concomitant]
     Active Substance: ALPRAZOLAM
     Indication: SLEEP DISORDER
     Dosage: .25 MG, 1X/DAY [AT BEDTIME]
     Route: 048
  6. SUTENT [Suspect]
     Active Substance: SUNITINIB MALATE
     Dosage: 37.5 MG, DAILY,  (3 TABS DAILY)
     Route: 048
     Dates: start: 20160822
  7. HYDROCHLOROTHIAZIDE. [Concomitant]
     Active Substance: HYDROCHLOROTHIAZIDE
     Dosage: UNK
  8. FLONASE [Concomitant]
     Active Substance: FLUTICASONE PROPIONATE
     Indication: SINUS DISORDER
     Dosage: UNK, DAILY [2 SPRAYS]
     Route: 045
  9. OMEPRAZOLE. [Concomitant]
     Active Substance: OMEPRAZOLE
     Indication: GASTROOESOPHAGEAL REFLUX DISEASE
     Dosage: 20 MG, 2X/DAY
     Route: 048
  10. CITRACAL + D [Concomitant]
     Active Substance: CALCIUM CITRATE\VITAMIN D
     Indication: ARTHROPATHY
  11. CALCIUM [Concomitant]
     Active Substance: CALCIUM
     Dosage: UNK
  12. NORCO [Concomitant]
     Active Substance: ACETAMINOPHEN\HYDROCODONE BITARTRATE
     Dosage: UNK
  13. ONE A DAY MEN^S VITACRAVES GUMMIES [Concomitant]
     Indication: VITAMIN SUPPLEMENTATION
     Dosage: UNK
     Dates: start: 2015
  14. SUTENT [Suspect]
     Active Substance: SUNITINIB MALATE
     Indication: METASTATIC RENAL CELL CARCINOMA
     Dosage: 50 MG, CYCLIC (2 WEEKS ON/1 WEEK OFF)
     Dates: start: 20160907
  15. ONE A DAY MEN^S VITACRAVES GUMMIES [Concomitant]
     Indication: METABOLIC SURGERY
  16. WELLBUTRIN XL [Concomitant]
     Active Substance: BUPROPION HYDROCHLORIDE
     Indication: MOOD ALTERED
     Dosage: 300 MG, 1X/DAY
     Route: 048
     Dates: start: 201701
  17. CITRACAL + D [Concomitant]
     Active Substance: CALCIUM CITRATE\VITAMIN D
     Indication: ARTHRITIS
     Dosage: 2 DF, UNK
     Route: 048
     Dates: start: 2015
  18. FUROSEMIDE. [Concomitant]
     Active Substance: FUROSEMIDE
     Indication: FLUID RETENTION
     Dosage: 20 MG, 1X/DAY
     Route: 048
     Dates: start: 201702

REACTIONS (13)
  - Skin reaction [Unknown]
  - Oral disorder [Unknown]
  - Erythema [Recovered/Resolved]
  - Fatigue [Not Recovered/Not Resolved]
  - Dysgeusia [Unknown]
  - Gait disturbance [Unknown]
  - Pain [Recovered/Resolved]
  - Skin irritation [Unknown]
  - Pain in extremity [Recovering/Resolving]
  - Ageusia [Unknown]
  - Rash [Recovered/Resolved]
  - Laziness [Unknown]
  - Stomatitis [Recovered/Resolved]
